FAERS Safety Report 25108458 (Version 1)
Quarter: 2025Q1

REPORT INFORMATION
  Report Type: Spontaneous
  Country: PL (occurrence: PL)
  Receive Date: 20250322
  Receipt Date: 20250322
  Transmission Date: 20250409
  Serious: Yes (Other)
  Sender: AUROBINDO
  Company Number: PL-TEVA-2022-PL-2075836

PATIENT
  Age: 51 Year
  Sex: Male

DRUGS (8)
  1. AMLODIPINE [Suspect]
     Active Substance: AMLODIPINE BESYLATE
     Indication: Hypertension
     Route: 048
  2. PREGABALIN [Suspect]
     Active Substance: PREGABALIN
     Indication: Visceral pain
     Dosage: 300 MILLIGRAM, ONCE A DAY
     Route: 065
  3. AMLODIPINE\PERINDOPRIL [Interacting]
     Active Substance: AMLODIPINE\PERINDOPRIL
     Indication: Hypertension
     Route: 065
  4. CALCIUM CARBONATE [Suspect]
     Active Substance: CALCIUM CARBONATE
     Indication: Osteopenia
     Dosage: 2000 MILLIGRAM, ONCE A DAY
     Route: 048
  5. DICLOFENAC [Interacting]
     Active Substance: DICLOFENAC
     Indication: Visceral pain
     Dosage: 100 MILLIGRAM, ONCE A DAY
     Route: 048
  6. OXYCODONE [Suspect]
     Active Substance: OXYCODONE
     Indication: Visceral pain
     Dosage: 120 MILLIGRAM, ONCE A DAY
     Route: 048
  7. PERINDOPRIL [Concomitant]
     Active Substance: PERINDOPRIL
     Indication: Product used for unknown indication
     Route: 065
  8. FERROUS CARBONATE [Concomitant]
     Active Substance: FERROUS CARBONATE
     Indication: Product used for unknown indication
     Dosage: 2000 MILLIGRAM, ONCE A DAY
     Route: 065

REACTIONS (5)
  - Abdominal discomfort [Recovered/Resolved]
  - Dyschezia [Recovered/Resolved]
  - Defaecation disorder [Recovered/Resolved]
  - Drug interaction [Recovered/Resolved]
  - Drug ineffective [Unknown]
